FAERS Safety Report 9925889 (Version 2)
Quarter: 2014Q1

REPORT INFORMATION
  Report Type: Spontaneous
  Country: PT (occurrence: PT)
  Receive Date: 20140226
  Receipt Date: 20140312
  Transmission Date: 20141002
  Serious: Yes (Hospitalization, Other)
  Sender: FDA-Public Use
  Company Number: PT-ACTAVIS-2014-03133

PATIENT
  Age: 34 Year
  Sex: Female

DRUGS (2)
  1. TOPIRAMATE (UNKNOWN) [Suspect]
     Indication: PROPHYLAXIS
     Dosage: 75 MG, DAILY
     Route: 065
  2. TOPIRAMATE (UNKNOWN) [Suspect]
     Dosage: DOSES INCREASED UP TO 75 MG, DAILY
     Route: 065
     Dates: start: 20100810

REACTIONS (1)
  - Myopia [Recovering/Resolving]
